FAERS Safety Report 8821166 (Version 2)
Quarter: 2012Q4

REPORT INFORMATION
  Report Type: 
  Country: US (occurrence: US)
  Receive Date: 20121002
  Receipt Date: 20121018
  Transmission Date: 20130627
  Serious: Yes (Life-Threatening, Hospitalization, Other)
  Sender: FDA-Public Use
  Company Number: US-ROCHE-1107914

PATIENT
  Age: 65 Year
  Sex: Female
  Weight: 86.8 kg

DRUGS (18)
  1. TNKASE [Suspect]
     Indication: THROMBOLYSIS
     Dosage: concentration:5mg/ml
     Route: 041
     Dates: start: 20120821, end: 20120822
  2. ASA [Concomitant]
     Indication: CORONARY ARTERY DISEASE
     Route: 048
     Dates: end: 20120822
  3. ATENOLOL [Concomitant]
     Indication: CORONARY ARTERY DISEASE
     Route: 048
     Dates: end: 20120822
  4. CILOSTAZOL [Concomitant]
     Indication: PERIPHERAL VASCULAR DISORDER
     Route: 048
     Dates: end: 20120822
  5. GLIPIZIDE [Concomitant]
     Indication: DIABETES MELLITUS
     Route: 048
     Dates: end: 20120822
  6. GLUCOPHAGE [Concomitant]
     Indication: DIABETES MELLITUS
     Route: 048
  7. HCTZ [Concomitant]
     Indication: HYPERTENSION
     Route: 048
     Dates: end: 20120822
  8. ISOSORBIDE MONONITRATE [Concomitant]
     Indication: CORONARY ARTERY DISEASE
     Route: 048
  9. LISINOPRIL [Concomitant]
     Indication: HYPERTENSION
     Route: 048
  10. OMEPRAZOLE [Concomitant]
     Route: 048
     Dates: end: 20120822
  11. KCL [Concomitant]
     Route: 048
     Dates: end: 20120822
  12. SIMVASTATIN [Concomitant]
     Route: 048
     Dates: end: 20120822
  13. SYNTHROID [Concomitant]
     Indication: HYPOTHYROIDISM
     Route: 048
     Dates: end: 20120822
  14. ACETAMINOPHEN [Concomitant]
     Route: 048
     Dates: start: 20120820, end: 20120822
  15. HYDROMORPHONE [Concomitant]
     Indication: PAIN
     Route: 042
     Dates: start: 20120820, end: 20120822
  16. TIZANIDINE [Concomitant]
     Indication: BACK PAIN
     Route: 048
     Dates: end: 20120822
  17. LABETALOL [Concomitant]
     Route: 042
     Dates: end: 20120822
  18. ONDANSETRON [Concomitant]
     Indication: NAUSEA
     Route: 042
     Dates: start: 20120820, end: 20120822

REACTIONS (5)
  - Haemorrhage intracranial [Not Recovered/Not Resolved]
  - Subarachnoid haemorrhage [Not Recovered/Not Resolved]
  - Cerebellar haematoma [Not Recovered/Not Resolved]
  - Poor quality drug administered [Unknown]
  - Product quality issue [Unknown]
